FAERS Safety Report 15532578 (Version 1)
Quarter: 2018Q4

REPORT INFORMATION
  Report Type: Spontaneous
  Country: NL (occurrence: NL)
  Receive Date: 20181019
  Receipt Date: 20181019
  Transmission Date: 20190205
  Serious: Yes (Hospitalization, Other)
  Sender: FDA-Public Use
  Company Number: NL-GLAXOSMITHKLINE-NL1998000001

PATIENT
  Age: 78 Year
  Sex: Male

DRUGS (9)
  1. AMILORIDE HYDROCHLORIDE. [Suspect]
     Active Substance: AMILORIDE HYDROCHLORIDE
     Indication: MYOCARDIAL INFARCTION
     Dosage: UNK
     Route: 065
     Dates: start: 19980613, end: 19981108
  2. AMILORIDE HYDROCHLORIDE. [Suspect]
     Active Substance: AMILORIDE HYDROCHLORIDE
     Dosage: UNK
     Route: 065
     Dates: start: 19981113, end: 19981113
  3. DICLOFENAC [Suspect]
     Active Substance: DICLOFENAC
     Indication: MYOCARDIAL INFARCTION
     Dosage: 50 MG, UNK
     Route: 065
     Dates: start: 19981108, end: 19981108
  4. FLUVASTATIN [Suspect]
     Active Substance: FLUVASTATIN SODIUM
     Dosage: 80 MG, UNK
     Route: 048
     Dates: start: 19980623, end: 19981108
  5. DILTIAZEM. [Concomitant]
     Active Substance: DILTIAZEM
     Indication: PRODUCT USED FOR UNKNOWN INDICATION
     Dosage: UNK
     Route: 065
  6. ACETOSAL [Suspect]
     Active Substance: ASPIRIN
     Indication: MYOCARDIAL INFARCTION
     Dosage: 80 MG, UNK
     Route: 065
     Dates: start: 19980613, end: 19981108
  7. FLUVASTATIN [Suspect]
     Active Substance: FLUVASTATIN SODIUM
     Indication: MYOCARDIAL INFARCTION
     Dosage: 40 MG, UNK
     Route: 048
     Dates: start: 19980616, end: 19980623
  8. ACETOSAL [Suspect]
     Active Substance: ASPIRIN
     Dosage: 80 MG, UNK
     Route: 065
     Dates: start: 19981113
  9. FRAXIPARINE [Concomitant]
     Active Substance: NADROPARIN CALCIUM
     Indication: PRODUCT USED FOR UNKNOWN INDICATION
     Dosage: UNK
     Route: 065

REACTIONS (2)
  - Gallbladder disorder [Recovering/Resolving]
  - Renal impairment [Not Recovered/Not Resolved]

NARRATIVE: CASE EVENT DATE: 19981108
